FAERS Safety Report 6545320-X (Version None)
Quarter: 2010Q1

REPORT INFORMATION
  Report Type: 
  Country: None (occurrence: None)
  Receive Date: 20100121
  Receipt Date: 20100113
  Transmission Date: 20100710
  Serious: Yes (Death)
  Sender: FDA-Public Use
  Company Number: US-MERCK-1001USA01459

PATIENT
  Age: 57 Year
  Sex: Male

DRUGS (3)
  1. ZOCOR [Suspect]
     Route: 048
  2. CARBON MONOXIDE [Suspect]
     Route: 055
  3. SOTALOL HYDROCHLORIDE [Suspect]
     Route: 065

REACTIONS (2)
  - COMPLETED SUICIDE [None]
  - OVERDOSE [None]
